FAERS Safety Report 4376996-3 (Version None)
Quarter: 2004Q2

REPORT INFORMATION
  Report Type: 
  Country: None (occurrence: None)
  Receive Date: 20040614
  Receipt Date: 20040524
  Transmission Date: 20050107
  Serious: Yes (Life-Threatening, Hospitalization)
  Sender: FDA-Public Use
  Company Number: US-MERCK-0405USA02158

PATIENT
  Sex: Male

DRUGS (1)
  1. VIOXX [Suspect]
     Route: 048

REACTIONS (6)
  - ASPIRATION [None]
  - FOREIGN BODY ASPIRATION [None]
  - GASTROOESOPHAGEAL REFLUX DISEASE [None]
  - LUNG INJURY [None]
  - MEDICATION ERROR [None]
  - VOMITING [None]
